FAERS Safety Report 15143761 (Version 1)
Quarter: 2018Q3

REPORT INFORMATION
  Report Type: Spontaneous
  Country: US (occurrence: US)
  Receive Date: 20180713
  Receipt Date: 20180713
  Transmission Date: 20181010
  Serious: No
  Sender: FDA-Public Use
  Company Number: US-AMGEN-USASP2010007607

PATIENT
  Age: 70 Year
  Sex: Male

DRUGS (13)
  1. RENOCAL?76 [Concomitant]
     Active Substance: DIATRIZOATE MEGLUMINE\DIATRIZOATE SODIUM
  2. ISOSORBIDE. [Concomitant]
     Active Substance: ISOSORBIDE
  3. LOPRESSOR [Concomitant]
     Active Substance: METOPROLOL TARTRATE
  4. RENAGEL [Concomitant]
     Active Substance: SEVELAMER HYDROCHLORIDE
  5. K?DUR [Concomitant]
     Active Substance: POTASSIUM CHLORIDE
  6. ZOCOR [Concomitant]
     Active Substance: SIMVASTATIN
  7. MAGNESIUM OXIDE. [Concomitant]
     Active Substance: MAGNESIUM OXIDE
  8. ASPIRIN. [Concomitant]
     Active Substance: ASPIRIN
  9. HECTOROL [Concomitant]
     Active Substance: DOXERCALCIFEROL
  10. COLACE [Concomitant]
     Active Substance: DOCUSATE SODIUM
  11. POLY?IRON                          /01214501/ [Concomitant]
  12. EPOGEN [Suspect]
     Active Substance: ERYTHROPOIETIN
     Indication: CHRONIC KIDNEY DISEASE
     Dosage: 6000 UNIT, UNK
     Route: 058
  13. PRILOSEC [Concomitant]
     Active Substance: OMEPRAZOLE MAGNESIUM

REACTIONS (1)
  - Injection site pain [Unknown]

NARRATIVE: CASE EVENT DATE: 201011
